FAERS Safety Report 11308024 (Version 1)
Quarter: 2015Q3

REPORT INFORMATION
  Report Type: Not Available
  Country: FR (occurrence: FR)
  Receive Date: 20150724
  Receipt Date: 20150724
  Transmission Date: 20151125
  Serious: Yes (Hospitalization)
  Sender: FDA-Public Use
  Company Number: FR-BEH-2015052548

PATIENT
  Age: 19 Year
  Sex: Female

DRUGS (4)
  1. MABTHERA [Suspect]
     Active Substance: RITUXIMAB
     Indication: THROMBOCYTOPENIA
     Dosage: SINGLE DOSE
     Route: 042
     Dates: start: 20150605, end: 20150605
  2. IMUREL [Concomitant]
     Active Substance: AZATHIOPRINE SODIUM
  3. CORTANCYL [Concomitant]
     Active Substance: PREDNISONE
     Route: 048
  4. PRIVIGEN [Suspect]
     Active Substance: HUMAN IMMUNOGLOBULIN G
     Indication: THROMBOCYTOPENIA
     Dosage: 2 G/KG
     Route: 042
     Dates: start: 20150609

REACTIONS (1)
  - Autoimmune haemolytic anaemia [Recovering/Resolving]

NARRATIVE: CASE EVENT DATE: 20150612
